FAERS Safety Report 15529989 (Version 4)
Quarter: 2018Q4

REPORT INFORMATION
  Report Type: Spontaneous
  Country: US (occurrence: US)
  Receive Date: 20181020
  Receipt Date: 20181124
  Transmission Date: 20190205
  Serious: No
  Sender: FDA-Public Use
  Company Number: US-JNJFOC-20180936480

PATIENT
  Age: 78 Year
  Sex: Female
  Weight: 61.24 kg

DRUGS (5)
  1. KETOCONAZOLE. [Suspect]
     Active Substance: KETOCONAZOLE
     Indication: SKIN DISORDER
     Route: 061
     Dates: start: 20180920, end: 20180925
  2. DIPHENHYDRAMINE. [Concomitant]
     Active Substance: DIPHENHYDRAMINE
     Indication: MULTIPLE ALLERGIES
     Route: 048
     Dates: start: 201808, end: 20180920
  3. VITAMIN B12 [Concomitant]
     Active Substance: CYANOCOBALAMIN
     Indication: NUTRITIONAL SUPPLEMENTATION
     Route: 048
     Dates: start: 201808, end: 20180920
  4. VITAMIN D [Concomitant]
     Active Substance: CHOLECALCIFEROL
     Indication: NUTRITIONAL SUPPLEMENTATION
     Route: 048
     Dates: start: 201808
  5. ALLEGRA [Concomitant]
     Active Substance: FEXOFENADINE HYDROCHLORIDE
     Indication: MULTIPLE ALLERGIES
     Dosage: ONCE OR TWICE A DAY/
     Route: 048
     Dates: start: 201808, end: 20180920

REACTIONS (5)
  - Skin exfoliation [Recovered/Resolved]
  - Drug ineffective [Unknown]
  - Ear swelling [Recovered/Resolved]
  - Skin reaction [Not Recovered/Not Resolved]
  - Scratch [Recovered/Resolved]

NARRATIVE: CASE EVENT DATE: 2018
